FAERS Safety Report 22221568 (Version 1)
Quarter: 2023Q2

REPORT INFORMATION
  Report Type: Spontaneous
  Country: DE (occurrence: DE)
  Receive Date: 20230418
  Receipt Date: 20230418
  Transmission Date: 20230721
  Serious: Yes (Death, Hospitalization, Other)
  Sender: FDA-Public Use
  Company Number: DE-JNJFOC-20230433357

PATIENT
  Sex: Female

DRUGS (2)
  1. UPTRAVI [Suspect]
     Active Substance: SELEXIPAG
     Indication: Pulmonary arterial hypertension
     Route: 048
     Dates: start: 20230309, end: 20230405
  2. UPTRAVI [Suspect]
     Active Substance: SELEXIPAG
     Dosage: 3X200 UG
     Route: 048
     Dates: end: 20230405

REACTIONS (2)
  - Death [Fatal]
  - N-terminal prohormone brain natriuretic peptide increased [Unknown]
